FAERS Safety Report 4687161-4 (Version None)
Quarter: 2005Q2

REPORT INFORMATION
  Report Type: 
  Country: None (occurrence: None)
  Receive Date: 20050607
  Receipt Date: 20050518
  Transmission Date: 20051028
  Serious: No
  Sender: FDA-Public Use
  Company Number: USA050597180

PATIENT
  Age: 16 Year
  Sex: Male
  Weight: 51 kg

DRUGS (1)
  1. STRATTERA [Suspect]
     Indication: ATTENTION DEFICIT/HYPERACTIVITY DISORDER
     Dosage: 58 MG DAY
     Dates: start: 20040701

REACTIONS (5)
  - BLOOD ALBUMIN DECREASED [None]
  - CHROMATURIA [None]
  - FAECES PALE [None]
  - FATIGUE [None]
  - HEADACHE [None]
